FAERS Safety Report 10163639 (Version 2)
Quarter: 2014Q2

REPORT INFORMATION
  Report Type: Report from Study
  Country: DE (occurrence: NL)
  Receive Date: 20140509
  Receipt Date: 20140528
  Transmission Date: 20141212
  Serious: Yes (Death, Other)
  Sender: FDA-Public Use
  Company Number: DE-ACTELION-A-US2008-98268

PATIENT
  Age: 46 Year
  Sex: Female

DRUGS (1)
  1. VENTAVIS [Suspect]
     Indication: PRODUCT USED FOR UNKNOWN INDICATION
     Dosage: UNKNOWN
     Route: 055
     Dates: start: 20080802, end: 20081218

REACTIONS (5)
  - Pulmonary arterial hypertension [Fatal]
  - Respiratory tract infection [Unknown]
  - General physical health deterioration [Unknown]
  - Asthenia [Unknown]
  - Sleep apnoea syndrome [Unknown]
